FAERS Safety Report 10955718 (Version 1)
Quarter: 2015Q1

REPORT INFORMATION
  Report Type: Spontaneous
  Country: IT (occurrence: IT)
  Receive Date: 20150326
  Receipt Date: 20150326
  Transmission Date: 20150721
  Serious: Yes (Hospitalization)
  Sender: FDA-Public Use
  Company Number: IT-SUN PHARMACEUTICAL INDUSTRIES LTD-2015RR-94587

PATIENT
  Age: 27 Year
  Sex: Female

DRUGS (2)
  1. PARACETAMOL [Suspect]
     Active Substance: ACETAMINOPHEN
     Indication: MALAISE
     Dosage: 500 MG COMPLETE
     Route: 048
     Dates: start: 20150303, end: 20150303
  2. BRUFEN [Suspect]
     Active Substance: IBUPROFEN
     Indication: MALAISE
     Dosage: 600 MG COMPLETE
     Route: 048
     Dates: start: 20150303, end: 20150303

REACTIONS (1)
  - Erythema [Unknown]

NARRATIVE: CASE EVENT DATE: 20150303
